FAERS Safety Report 5955491-1 (Version None)
Quarter: 2008Q4

REPORT INFORMATION
  Report Type: 
  Country: None (occurrence: None)
  Receive Date: 20081117
  Receipt Date: 20081111
  Transmission Date: 20090506
  Serious: Yes (Other)
  Sender: FDA-Public Use
  Company Number: BR-JNJFOC-20080902804

PATIENT
  Sex: Male
  Weight: 90 kg

DRUGS (2)
  1. REMICADE [Suspect]
     Indication: PSORIATIC ARTHROPATHY
     Dosage: RECEIVED 5 DOSES OF INFLIXIMAB
     Route: 042
  2. METHOTREXATE [Concomitant]

REACTIONS (1)
  - PROSTATE CANCER [None]
